FAERS Safety Report 18396584 (Version 16)
Quarter: 2021Q3

REPORT INFORMATION
  Report Type: Spontaneous
  Country: CA (occurrence: CA)
  Receive Date: 20201019
  Receipt Date: 20210810
  Transmission Date: 20211014
  Serious: Yes (Other)
  Sender: FDA-Public Use
  Company Number: CA-CELLTRION INC.-2020CA027958

PATIENT

DRUGS (21)
  1. DIPHENHYDRAMINE. [Concomitant]
     Active Substance: DIPHENHYDRAMINE
     Indication: PREMEDICATION
     Dosage: 50 MG
     Dates: start: 20200910, end: 20200910
  2. COVID?19 VACCINE [Concomitant]
     Indication: COVID-19 IMMUNISATION
     Dosage: UNKNOWN DOSE NUMBER, SINGLE
  3. INFLECTRA [Suspect]
     Active Substance: INFLIXIMAB-DYYB
     Indication: CROHN^S DISEASE
     Dosage: 400 MG AT 0, 2, 6, THEN EVERY 8 WEEKS
     Route: 042
     Dates: start: 20200826, end: 20200826
  4. DIMENHYDRINATE. [Concomitant]
     Active Substance: DIMENHYDRINATE
     Indication: PREMEDICATION
     Dosage: 50 MG
     Dates: start: 20200910, end: 20200910
  5. METHYLPREDNISOLONE. [Concomitant]
     Active Substance: METHYLPREDNISOLONE
     Dosage: 20 MG, 2X/DAY (EVERY 12 HOURS)
     Route: 042
     Dates: start: 2020
  6. METHOTREXATE. [Concomitant]
     Active Substance: METHOTREXATE
     Dosage: 10 MG
     Route: 065
  7. PREDNISONE. [Concomitant]
     Active Substance: PREDNISONE
     Indication: CROHN^S DISEASE
     Dosage: 10 MG, DAILY ( TAPERING OVER 4 WEEKS)
     Dates: start: 20201107
  8. FLAGYL [Concomitant]
     Active Substance: METRONIDAZOLE\METRONIDAZOLE HYDROCHLORIDE
     Dosage: 400 MG, 2X/DAY (EVERY 12 HOURS)
     Route: 042
     Dates: start: 2020
  9. SULFASALAZINE. [Concomitant]
     Active Substance: SULFASALAZINE
     Dosage: 500 MG
     Route: 065
  10. INFLECTRA [Suspect]
     Active Substance: INFLIXIMAB-DYYB
     Dosage: 400 MG AT 2, 6, THEN EVERY 8 WEEKS
     Route: 042
     Dates: start: 20201009, end: 20201009
  11. HYDROCORTISONE. [Concomitant]
     Active Substance: HYDROCORTISONE
     Indication: PREMEDICATION
     Dosage: 100 MG
     Dates: start: 20200910, end: 20200910
  12. INFLECTRA [Suspect]
     Active Substance: INFLIXIMAB-DYYB
     Dosage: 400 MG AT 2, 6, THEN EVERY 8 WEEKS
     Route: 042
     Dates: start: 20210324, end: 20210324
  13. INFLECTRA [Suspect]
     Active Substance: INFLIXIMAB-DYYB
     Dosage: 400 MG AT 2, 6, THEN EVERY 8 WEEKS
     Route: 042
     Dates: start: 20210519, end: 20210519
  14. INFLECTRA [Suspect]
     Active Substance: INFLIXIMAB-DYYB
     Dosage: 400 MG AT 2, 6, THEN EVERY 8 WEEKS
     Route: 042
     Dates: start: 20200910, end: 20200910
  15. INFLECTRA [Suspect]
     Active Substance: INFLIXIMAB-DYYB
     Dosage: 400 MG  EVERY 4 WEEKS
     Route: 042
     Dates: start: 20210726
  16. CIPRO [Concomitant]
     Active Substance: CIPROFLOXACIN HYDROCHLORIDE
     Dosage: 400 MG, 2X/DAY (EVERY 12 HOURS)
     Route: 042
     Dates: start: 2020
  17. INFLECTRA [Suspect]
     Active Substance: INFLIXIMAB-DYYB
     Dosage: 400 MG AT 2, 6, THEN EVERY 8 WEEKS
     Route: 042
     Dates: start: 20201202, end: 20201202
  18. INFLECTRA [Suspect]
     Active Substance: INFLIXIMAB-DYYB
     Dosage: 400 MG AT 2, 6, THEN EVERY 8 WEEKS
     Route: 042
     Dates: start: 20210127, end: 20210127
  19. INFLECTRA [Suspect]
     Active Substance: INFLIXIMAB-DYYB
     Dosage: 400 MG EVERY 4 WEEKS
     Route: 042
     Dates: start: 20210625, end: 20210625
  20. PANTOPRAZOLE [Concomitant]
     Active Substance: PANTOPRAZOLE
     Dosage: 40 MG
     Route: 042
     Dates: start: 2020
  21. COVID?19 VACCINE [Concomitant]
     Dosage: UNKNOWN DOSE NUMBER, SINGLE
     Dates: start: 202106, end: 202106

REACTIONS (16)
  - Pain [Not Recovered/Not Resolved]
  - Weight increased [Not Recovered/Not Resolved]
  - Cough [Unknown]
  - Drug specific antibody present [Unknown]
  - Sleep disorder due to general medical condition, insomnia type [Unknown]
  - Chills [Unknown]
  - Off label use [Unknown]
  - Rheumatoid arthritis [Not Recovered/Not Resolved]
  - Drug ineffective [Unknown]
  - Therapeutic response shortened [Unknown]
  - Rash [Recovering/Resolving]
  - Condition aggravated [Unknown]
  - Pruritus [Recovered/Resolved]
  - Night sweats [Recovered/Resolved]
  - Arthralgia [Not Recovered/Not Resolved]
  - Diarrhoea [Not Recovered/Not Resolved]

NARRATIVE: CASE EVENT DATE: 2020
